FAERS Safety Report 7000825-2 (Version None)
Quarter: 2010Q3

REPORT INFORMATION
  Report Type: 
  Country: None (occurrence: None)
  Receive Date: 20100920
  Receipt Date: 20090828
  Transmission Date: 20110219
  Serious: No
  Sender: FDA-Public Use
  Company Number: US-ASTRAZENECA-2009SE10460

PATIENT
  Age: 53 Year
  Sex: Female

DRUGS (6)
  1. SEROQUEL XR [Suspect]
     Indication: BIPOLAR DISORDER
     Route: 048
     Dates: start: 20090803
  2. SEROQUEL XR [Suspect]
     Route: 048
     Dates: start: 20090806
  3. SEROQUEL XR [Suspect]
     Route: 048
     Dates: start: 20090824
  4. NORVASC [Concomitant]
  5. ASPIRIN [Concomitant]
  6. PROVENIL [Concomitant]

REACTIONS (2)
  - ABDOMINAL DISCOMFORT [None]
  - ABNORMAL DREAMS [None]
